FAERS Safety Report 16610314 (Version 1)
Quarter: 2019Q3

REPORT INFORMATION
  Report Type: Spontaneous
  Country: JP (occurrence: JP)
  Receive Date: 20190722
  Receipt Date: 20190722
  Transmission Date: 20191004
  Serious: Yes (Hospitalization)
  Sender: FDA-Public Use
  Company Number: JP-ALLERGAN-1929306US

PATIENT
  Sex: Female

DRUGS (1)
  1. URSODEOXYCHOLIC ACID UNK [Suspect]
     Active Substance: URSODIOL
     Indication: PRIMARY BILIARY CHOLANGITIS
     Dosage: 600 MG, QD
     Route: 065

REACTIONS (7)
  - Autoimmune hepatitis [Recovering/Resolving]
  - Drug ineffective [Unknown]
  - Aspartate aminotransferase increased [Recovering/Resolving]
  - Alanine aminotransferase increased [Recovering/Resolving]
  - Overlap syndrome [Recovering/Resolving]
  - Jaundice [Recovering/Resolving]
  - Blood alkaline phosphatase decreased [Recovering/Resolving]
